FAERS Safety Report 7067623-5 (Version None)
Quarter: 2010Q4

REPORT INFORMATION
  Report Type: 
  Country: None (occurrence: None)
  Receive Date: 20101019
  Receipt Date: 20101005
  Transmission Date: 20110411
  Serious: Yes (Other)
  Sender: FDA-Public Use
  Company Number: MC201000287

PATIENT
  Age: 67 Year
  Sex: Male
  Weight: 109 kg

DRUGS (8)
  1. ANGIOMAX [Suspect]
     Indication: AORTIC BYPASS
     Dosage: 1.15 MG/KG, BOLUS, INTRAVENOUS
     Route: 040
  2. ATENOLOL [Concomitant]
  3. AMLODIPINE [Concomitant]
  4. LEVOTHYROXINE SODIUM [Concomitant]
  5. FENTANYL-100 [Concomitant]
  6. MIDAZOLAM HYDROCHLORIDE [Concomitant]
  7. VECURONIUM BROMIDE [Concomitant]
  8. ISOFLURANE [Concomitant]

REACTIONS (8)
  - COAGULATION TIME PROLONGED [None]
  - COAGULOPATHY [None]
  - DEEP VEIN THROMBOSIS [None]
  - HAEMORRHAGE [None]
  - HYPOVOLAEMIA [None]
  - MICROANGIOPATHY [None]
  - OEDEMA PERIPHERAL [None]
  - OFF LABEL USE [None]
